FAERS Safety Report 10050280 (Version 2)
Quarter: 2014Q2

REPORT INFORMATION
  Report Type: Spontaneous
  Country: DE (occurrence: DE)
  Receive Date: 20140401
  Receipt Date: 20140416
  Transmission Date: 20141212
  Serious: Yes (Other)
  Sender: FDA-Public Use
  Company Number: PHHY2014DE036089

PATIENT
  Age: 50 Year
  Sex: Female

DRUGS (4)
  1. PREDNISONE [Suspect]
     Indication: TEMPORAL ARTERITIS
     Dosage: 20 MG, QD
  2. PREDNISONE [Suspect]
     Dosage: 5 MG, UNK
  3. METHOTREXATE [Concomitant]
     Indication: TEMPORAL ARTERITIS
  4. CYCLOPHOSPHAMIDE [Concomitant]
     Indication: TEMPORAL ARTERITIS

REACTIONS (3)
  - Spinal fracture [Unknown]
  - Temporal arteritis [Recovered/Resolved]
  - Condition aggravated [Unknown]
